FAERS Safety Report 23836242 (Version 1)
Quarter: 2024Q2

REPORT INFORMATION
  Report Type: Other
  Country: US (occurrence: None)
  Receive Date: 20240509
  Receipt Date: 20240509
  Transmission Date: 20240716
  Serious: Yes (Hospitalization, Other)
  Sender: FDA-Public Use
  Company Number: US-ROCHE-3557345

PATIENT
  Age: 50 Year
  Sex: Female
  Weight: 79.45 kg

DRUGS (17)
  1. OCREVUS [Suspect]
     Active Substance: OCRELIZUMAB
     Indication: Multiple sclerosis
     Route: 065
  2. KLONOPIN [Suspect]
     Active Substance: CLONAZEPAM
     Indication: Product used for unknown indication
     Route: 048
  3. COPAXONE [Concomitant]
     Active Substance: GLATIRAMER ACETATE
  4. TOPAMAX [Concomitant]
     Active Substance: TOPIRAMATE
  5. XANAX [Concomitant]
     Active Substance: ALPRAZOLAM
  6. RIZATRIPTAN [Concomitant]
     Active Substance: RIZATRIPTAN
  7. VUMERITY [Concomitant]
     Active Substance: DIROXIMEL FUMARATE
  8. ATIVAN [Concomitant]
     Active Substance: LORAZEPAM
  9. BACLOFEN [Concomitant]
     Active Substance: BACLOFEN
  10. CAMBIA [Concomitant]
     Active Substance: DICLOFENAC POTASSIUM
  11. LYRICA [Concomitant]
     Active Substance: PREGABALIN
  12. MAXALT [Concomitant]
     Active Substance: RIZATRIPTAN BENZOATE
  13. MEDROL [Concomitant]
     Active Substance: METHYLPREDNISOLONE
  14. NAPROSYN [Concomitant]
     Active Substance: NAPROXEN
  15. NEURONTIN [Concomitant]
     Active Substance: GABAPENTIN
  16. PREDNISONE [Concomitant]
     Active Substance: PREDNISONE
  17. VITAMIN D2 [Concomitant]
     Active Substance: ERGOCALCIFEROL

REACTIONS (5)
  - Pain [Unknown]
  - Paraplegia [Unknown]
  - Urinary tract infection [Unknown]
  - Sepsis [Unknown]
  - Multiple sclerosis relapse [Unknown]
